FAERS Safety Report 21146193 (Version 1)
Quarter: 2022Q3

REPORT INFORMATION
  Report Type: Spontaneous
  Country: CH (occurrence: CH)
  Receive Date: 20220729
  Receipt Date: 20220729
  Transmission Date: 20221027
  Serious: Yes (Hospitalization)
  Sender: FDA-Public Use
  Company Number: CH-NEBO-PC008867

PATIENT
  Sex: Female

DRUGS (1)
  1. IRON ISOMALTOSIDE 1000 [Suspect]
     Active Substance: IRON ISOMALTOSIDE 1000
     Indication: Product used for unknown indication
     Route: 050

REACTIONS (5)
  - Bundle branch block [Unknown]
  - Hypersensitivity [Unknown]
  - Oxygen saturation decreased [Unknown]
  - Chest pain [Unknown]
  - Dyspnoea [Unknown]
